FAERS Safety Report 20670534 (Version 1)
Quarter: 2022Q2

REPORT INFORMATION
  Report Type: Spontaneous
  Country: US (occurrence: None)
  Receive Date: 20220402
  Receipt Date: 20220402
  Transmission Date: 20220721
  Serious: Yes (Hospitalization)
  Sender: FDA-Public Use
  Company Number: None

PATIENT
  Sex: Female
  Weight: 84.1 kg

DRUGS (1)
  1. TECHNETIUM TC-99M [Suspect]
     Active Substance: TECHNETIUM TC-99M
     Dates: end: 20220210

REACTIONS (3)
  - Postoperative wound infection [None]
  - Odynophagia [None]
  - Cellulitis [None]

NARRATIVE: CASE EVENT DATE: 20220226
